FAERS Safety Report 8461038-0 (Version None)
Quarter: 2012Q2

REPORT INFORMATION
  Report Type: 
  Country: None (occurrence: None)
  Receive Date: 20120625
  Receipt Date: 20120615
  Transmission Date: 20120825
  Serious: No
  Sender: FDA-Public Use
  Company Number: US-BIOGENIDEC-2012BI021461

PATIENT
  Age: 48 Year
  Sex: Female

DRUGS (1)
  1. TYSABRI [Suspect]
     Indication: MULTIPLE SCLEROSIS
     Route: 042
     Dates: start: 20120405, end: 20120601

REACTIONS (8)
  - LOSS OF CONSCIOUSNESS [None]
  - DECREASED APPETITE [None]
  - HYPOAESTHESIA [None]
  - FATIGUE [None]
  - WEIGHT DECREASED [None]
  - DEHYDRATION [None]
  - DIZZINESS [None]
  - DIARRHOEA [None]
